FAERS Safety Report 22155546 (Version 1)
Quarter: 2023Q1

REPORT INFORMATION
  Report Type: Spontaneous
  Country: US (occurrence: US)
  Receive Date: 20230330
  Receipt Date: 20230330
  Transmission Date: 20230417
  Serious: Yes (Hospitalization)
  Sender: FDA-Public Use
  Company Number: US-drreddys-LIT/USA/23/0162915

PATIENT
  Age: 21 Year
  Sex: Female

DRUGS (2)
  1. BORTEZOMIB [Suspect]
     Active Substance: BORTEZOMIB
     Indication: Immune tolerance induction
     Dosage: BEFORE 117, 125, 128, 134, 137 AND 147 DAYS
  2. RITUXIMAB [Suspect]
     Active Substance: RITUXIMAB
     Indication: Immune tolerance induction

REACTIONS (3)
  - Central-alveolar hypoventilation [Unknown]
  - Neuropathy peripheral [Unknown]
  - Product use in unapproved indication [Unknown]
